FAERS Safety Report 6463025-0 (Version None)
Quarter: 2009Q4

REPORT INFORMATION
  Report Type: 
  Country: None (occurrence: None)
  Receive Date: 20091130
  Receipt Date: 20091116
  Transmission Date: 20100525
  Serious: Yes (Other)
  Sender: FDA-Public Use
  Company Number: JP-PFIZER INC-2009298556

PATIENT
  Age: 57 Year
  Sex: Female

DRUGS (4)
  1. METHOTREXATE [Suspect]
     Dosage: 6 MG/WEEK
  2. SULFASALAZINE [Suspect]
     Dosage: 1000 MG/DAY FOR 5 WEEKS
  3. DICLOFENAC SODIUM [Concomitant]
  4. PREDNISOLONE [Concomitant]
     Dosage: 5MG/DAY

REACTIONS (2)
  - DRUG RASH WITH EOSINOPHILIA AND SYSTEMIC SYMPTOMS [None]
  - HERPES VIRUS INFECTION [None]
